FAERS Safety Report 23487027 (Version 1)
Quarter: 2024Q1

REPORT INFORMATION
  Report Type: Spontaneous
  Country: US (occurrence: US)
  Receive Date: 20240206
  Receipt Date: 20240206
  Transmission Date: 20240410
  Serious: Yes (Hospitalization, Other)
  Sender: FDA-Public Use
  Company Number: US-SA-SAC20240203000131

PATIENT
  Age: 1 Year
  Sex: Male
  Weight: 11.33 kg

DRUGS (1)
  1. DUPIXENT [Suspect]
     Active Substance: DUPILUMAB
     Indication: Product used for unknown indication
     Dosage: 200 MG, Q4W
     Route: 058

REACTIONS (3)
  - Facial paralysis [Recovering/Resolving]
  - Ear infection [Recovering/Resolving]
  - Conjunctivitis [Recovering/Resolving]
